FAERS Safety Report 9442007 (Version 1)
Quarter: 2013Q3

REPORT INFORMATION
  Report Type: Spontaneous
  Country: US (occurrence: US)
  Receive Date: 20130806
  Receipt Date: 20130806
  Transmission Date: 20140515
  Serious: Yes (Death)
  Sender: FDA-Public Use
  Company Number: US-ELI_LILLY_AND_COMPANY-US201308000151

PATIENT
  Sex: Male

DRUGS (1)
  1. HUMULIN NPH [Suspect]
     Dosage: UNK

REACTIONS (1)
  - Death [Fatal]
